FAERS Safety Report 5851937-8 (Version None)
Quarter: 2008Q3

REPORT INFORMATION
  Report Type: 
  Country: None (occurrence: None)
  Receive Date: 20080819
  Receipt Date: 20080806
  Transmission Date: 20090109
  Serious: Yes (Life-Threatening)
  Sender: FDA-Public Use
  Company Number: DSU-2008-01193

PATIENT
  Sex: Female

DRUGS (4)
  1. WELCHOL [Suspect]
     Indication: DIARRHOEA
     Dosage: PER ORAL, 3750 MG (1250 MG, TID)
     Route: 048
     Dates: start: 20071001, end: 20080101
  2. WELCHOL [Suspect]
     Indication: HYPERLIPIDAEMIA
     Dosage: PER ORAL, 3750 MG (1250 MG, TID)
     Route: 048
     Dates: start: 20071001, end: 20080101
  3. WELCHOL [Suspect]
     Indication: DIARRHOEA
     Dosage: PER ORAL, 3750 MG (1250 MG, TID)
     Route: 048
     Dates: start: 20080101, end: 20080507
  4. WELCHOL [Suspect]
     Indication: HYPERLIPIDAEMIA
     Dosage: PER ORAL, 3750 MG (1250 MG, TID)
     Route: 048
     Dates: start: 20080101, end: 20080507

REACTIONS (5)
  - ABDOMINAL DISTENSION [None]
  - BLOOD TRIGLYCERIDES INCREASED [None]
  - CARBOHYDRATE ANTIGEN 125 INCREASED [None]
  - IMMUNE SYSTEM DISORDER [None]
  - MALIGNANT PERITONEAL NEOPLASM [None]
